FAERS Safety Report 8503524-0 (Version None)
Quarter: 2012Q3

REPORT INFORMATION
  Report Type: 
  Country: None (occurrence: None)
  Receive Date: 20120711
  Receipt Date: 20120706
  Transmission Date: 20120928
  Serious: Yes (Hospitalization)
  Sender: FDA-Public Use
  Company Number: JP-TEVA-338037USA

PATIENT
  Sex: Male
  Weight: 64 kg

DRUGS (6)
  1. CARBOCISTEINE [Concomitant]
     Indication: EMPHYSEMA
     Dates: start: 20101001, end: 20120501
  2. LANSOPRAZOLE [Concomitant]
     Indication: GASTROOESOPHAGEAL REFLUX DISEASE
     Dosage: 15 MILLIGRAM;
     Dates: start: 20111212, end: 20120501
  3. TREANDA [Suspect]
     Indication: MANTLE CELL LYMPHOMA
     Dosage: CYCLE 1
     Route: 042
     Dates: start: 20111013, end: 20120314
  4. TIOTROPIUM BROMIDE [Concomitant]
     Indication: EMPHYSEMA
     Dates: start: 20111019, end: 20120501
  5. RITUXIMAB [Suspect]
     Indication: MANTLE CELL LYMPHOMA
     Route: 042
     Dates: start: 20111012, end: 20120312
  6. ACYCLOVIR [Concomitant]
     Indication: HERPES ZOSTER
     Dates: start: 20111114, end: 20120501

REACTIONS (1)
  - PULMONARY TUBERCULOSIS [None]
